FAERS Safety Report 12159044 (Version 1)
Quarter: 2016Q1

REPORT INFORMATION
  Report Type: Spontaneous
  Country: US (occurrence: None)
  Receive Date: 20160307
  Receipt Date: 20160307
  Transmission Date: 20160526
  Serious: No
  Sender: FDA-Public Use
  Company Number: None

PATIENT
  Age: 62 Year
  Sex: Male

DRUGS (7)
  1. FUROSEMIDE. [Concomitant]
     Active Substance: FUROSEMIDE
  2. METFORMIN [Concomitant]
     Active Substance: METFORMIN HYDROCHLORIDE
  3. LOSARTAN. [Concomitant]
     Active Substance: LOSARTAN
  4. METORPOL [Concomitant]
  5. XARELTO [Concomitant]
     Active Substance: RIVAROXABAN
  6. HARVONI [Suspect]
     Active Substance: LEDIPASVIR\SOFOSBUVIR
     Indication: CHRONIC HEPATITIS C
     Dosage: 1 TAB
     Route: 048
     Dates: start: 20160211
  7. GABAPENTIN. [Concomitant]
     Active Substance: GABAPENTIN

REACTIONS (3)
  - Sleep disorder [None]
  - Skin discolouration [None]
  - Diarrhoea [None]

NARRATIVE: CASE EVENT DATE: 20160211
